FAERS Safety Report 6576006-3 (Version None)
Quarter: 2010Q1

REPORT INFORMATION
  Report Type: 
  Country: None (occurrence: None)
  Receive Date: 20100209
  Receipt Date: 20100127
  Transmission Date: 20100710
  Serious: Yes (Other)
  Sender: FDA-Public Use
  Company Number: PHHY2010PL05618

PATIENT
  Age: 63 Year
  Sex: Female

DRUGS (9)
  1. SANDOSTATIN LAR [Suspect]
     Dosage: 30 MG, UNK
     Dates: start: 20080801
  2. FUROSEMIDE [Concomitant]
  3. SPIRONOLACTONE [Concomitant]
  4. BISOPROLOL [Concomitant]
  5. RAMIPRIL [Concomitant]
  6. DIGOXIN [Concomitant]
  7. HEPARIN [Concomitant]
  8. LEVOTHYROXINE SODIUM [Concomitant]
  9. TICLOPIDINE HCL [Concomitant]

REACTIONS (2)
  - HYPERBILIRUBINAEMIA [None]
  - PRURITUS [None]
